FAERS Safety Report 4765037-1 (Version None)
Quarter: 2005Q3

REPORT INFORMATION
  Report Type: 
  Country: None (occurrence: None)
  Receive Date: 20050907
  Receipt Date: 20050825
  Transmission Date: 20060218
  Serious: Yes (Hospitalization)
  Sender: FDA-Public Use
  Company Number: US015884

PATIENT
  Age: 11 Year
  Sex: Female

DRUGS (11)
  1. GABITRIL [Suspect]
     Indication: ATTENTION DEFICIT/HYPERACTIVITY DISORDER
     Dosage: 2 MG BID ORAL
     Route: 048
     Dates: start: 20021023, end: 20021124
  2. GABITRIL [Suspect]
     Indication: BIPOLAR DISORDER
     Dosage: 2 MG BID ORAL
     Route: 048
     Dates: start: 20021023, end: 20021124
  3. GABITRIL [Suspect]
     Indication: ATTENTION DEFICIT/HYPERACTIVITY DISORDER
     Dosage: 2 MG BID, ORAL
     Route: 048
     Dates: start: 20021023, end: 20021124
  4. GABITRIL [Suspect]
     Indication: BIPOLAR DISORDER
     Dosage: 2 MG BID, ORAL
     Route: 048
     Dates: start: 20021023, end: 20021124
  5. GABITRIL [Suspect]
     Indication: ATTENTION DEFICIT/HYPERACTIVITY DISORDER
     Dosage: 6 MG DAILY ORAL
     Route: 048
     Dates: start: 20021125, end: 20030119
  6. GABITRIL [Suspect]
     Indication: BIPOLAR DISORDER
     Dosage: 6 MG DAILY ORAL
     Route: 048
     Dates: start: 20021125, end: 20030119
  7. GABITRIL [Suspect]
     Indication: ATTENTION DEFICIT/HYPERACTIVITY DISORDER
     Dosage: 4 MG BID, ORAL
     Route: 048
     Dates: start: 20030120, end: 20040101
  8. GABITRIL [Suspect]
     Indication: BIPOLAR DISORDER
     Dosage: 4 MG BID, ORAL
     Route: 048
     Dates: start: 20030120, end: 20040101
  9. ADDERALL 10 [Concomitant]
  10. TOPAMAX [Concomitant]
  11. TRILEPTAL [Concomitant]

REACTIONS (1)
  - GRAND MAL CONVULSION [None]
